FAERS Safety Report 7122158-6 (Version None)
Quarter: 2010Q4

REPORT INFORMATION
  Report Type: 
  Country: None (occurrence: None)
  Receive Date: 20101119
  Receipt Date: 20101119
  Transmission Date: 20110411
  Serious: No
  Sender: FDA-Public Use
  Company Number: None

PATIENT
  Age: 44 Year
  Sex: Male
  Weight: 100 kg

DRUGS (4)
  1. NARDIL [Suspect]
     Indication: ANXIETY
     Dates: start: 20101004, end: 20101101
  2. NARDIL [Suspect]
     Indication: DEPRESSION
     Dates: start: 20101004, end: 20101101
  3. SIMVASTATIN [Concomitant]
  4. ALLOPURINOL [Concomitant]

REACTIONS (7)
  - DRUG INEFFECTIVE [None]
  - DYSGEUSIA [None]
  - DYSPNOEA [None]
  - HYPERTENSION [None]
  - MANIA [None]
  - MENTAL IMPAIRMENT [None]
  - PRODUCT FORMULATION ISSUE [None]
